FAERS Safety Report 5214970-5 (Version None)
Quarter: 2007Q1

REPORT INFORMATION
  Report Type: 
  Country: None (occurrence: None)
  Receive Date: 20070119
  Receipt Date: 20070119
  Transmission Date: 20070707
  Serious: Yes (Other)
  Sender: FDA-Public Use
  Company Number: None

PATIENT
  Sex: Female
  Weight: 63.5036 kg

DRUGS (1)
  1. SOOTHE EMOLLIENT  NO INDICATION ALIMERA [Suspect]
     Indication: DRY EYE
     Dosage: 1 DROP IN EACH EYE PRN OPTHALMIC
     Route: 047
     Dates: end: 20070116

REACTIONS (3)
  - EYE PAIN [None]
  - INSTILLATION SITE REACTION [None]
  - VISION BLURRED [None]
